FAERS Safety Report 19993651 (Version 1)
Quarter: 2021Q4

REPORT INFORMATION
  Report Type: Spontaneous
  Country: US (occurrence: US)
  Receive Date: 20211026
  Receipt Date: 20211026
  Transmission Date: 20220303
  Serious: No
  Sender: FDA-Public Use
  Company Number: US-SA-SAC20211020000317

PATIENT
  Age: 48 Year
  Sex: Female

DRUGS (2)
  1. DUPIXENT [Suspect]
     Active Substance: DUPILUMAB
     Indication: Dermatitis atopic
     Dosage: UNK UNK, 1X
     Route: 058
     Dates: start: 20211001, end: 20211001
  2. CORTISONE [Concomitant]
     Active Substance: CORTISONE
     Indication: Dermatitis contact
     Dosage: UNK
     Dates: start: 20211001

REACTIONS (7)
  - Injection site warmth [Unknown]
  - Injection site mass [Unknown]
  - Injection site swelling [Unknown]
  - Pyrexia [Unknown]
  - Vision blurred [Unknown]
  - Peripheral swelling [Unknown]
  - Arthralgia [Unknown]

NARRATIVE: CASE EVENT DATE: 20211013
